FAERS Safety Report 6761912-7 (Version None)
Quarter: 2010Q2

REPORT INFORMATION
  Report Type: 
  Country: None (occurrence: None)
  Receive Date: 20100609
  Receipt Date: 20100528
  Transmission Date: 20101027
  Serious: Yes (Other)
  Sender: FDA-Public Use
  Company Number: PHHY2010FR35599

PATIENT
  Age: 79 Year
  Sex: Female

DRUGS (2)
  1. ACLASTA [Suspect]
     Indication: OSTEOPOROSIS
     Dosage: ONE INFUSION
     Dates: start: 20091101
  2. PREVISCAN [Concomitant]
     Indication: ATRIAL FIBRILLATION

REACTIONS (3)
  - DENTAL DISCOMFORT [None]
  - DENTAL PROSTHESIS USER [None]
  - OSTEONECROSIS OF JAW [None]
